FAERS Safety Report 24294264 (Version 1)
Quarter: 2024Q3

REPORT INFORMATION
  Report Type: Spontaneous
  Country: US (occurrence: US)
  Receive Date: 20240906
  Receipt Date: 20240906
  Transmission Date: 20241017
  Serious: No
  Sender: DOMPE FARMACEUTICI
  Company Number: US-FARMAPROD-202406-2270

PATIENT
  Age: 75 Year
  Sex: Female

DRUGS (12)
  1. OXERVATE [Suspect]
     Active Substance: CENEGERMIN-BKBJ
     Indication: Neurotrophic keratopathy
     Route: 047
     Dates: start: 20240612
  2. GINGER [Concomitant]
     Active Substance: GINGER
  3. MULTIVITAMIN 50 PLUS [Concomitant]
  4. REFRESH CLASSIC [Concomitant]
     Active Substance: POLYVINYL ALCOHOL\POVIDONE
  5. POLYMYXIN B SUL-TRIMETHOPRIM [Concomitant]
  6. PRED FORTE [Concomitant]
     Active Substance: PREDNISOLONE ACETATE
  7. HYDROCHLOROTHIAZIDE [Concomitant]
     Active Substance: HYDROCHLOROTHIAZIDE
  8. BISOPROLOL FUMARATE [Concomitant]
     Active Substance: BISOPROLOL FUMARATE
  9. LOSARTAN POTASSIUM [Concomitant]
     Active Substance: LOSARTAN POTASSIUM
  10. NIFEDIPINE [Concomitant]
     Active Substance: NIFEDIPINE
     Dosage: FOR 24 HOURS
  11. UNIQUE [Concomitant]
  12. ADVIL [Concomitant]
     Active Substance: IBUPROFEN\IBUPROFEN SODIUM

REACTIONS (11)
  - Eye pain [Recovering/Resolving]
  - Photophobia [Unknown]
  - Accidental overdose [Unknown]
  - Wrong technique in product usage process [Unknown]
  - Eye swelling [Recovering/Resolving]
  - Eye irritation [Recovering/Resolving]
  - Foreign body sensation in eyes [Recovering/Resolving]
  - Eyelid ptosis [Unknown]
  - Vision blurred [Recovering/Resolving]
  - Swelling of eyelid [Recovering/Resolving]
  - Dry eye [Unknown]

NARRATIVE: CASE EVENT DATE: 20240612
